FAERS Safety Report 6306231-8 (Version None)
Quarter: 2009Q3

REPORT INFORMATION
  Report Type: 
  Country: None (occurrence: None)
  Receive Date: 20090812
  Receipt Date: 20090803
  Transmission Date: 20100115
  Serious: Yes (Death)
  Sender: FDA-Public Use
  Company Number: JP-NOVOPROD-290104

PATIENT
  Age: 74 Year
  Sex: Female
  Weight: 45 kg

DRUGS (2)
  1. NOVOSEVEN [Suspect]
     Indication: HAEMORRHAGE PROPHYLAXIS
     Dosage: 4.8 MG, UNK
     Route: 042
     Dates: start: 20090720, end: 20090720
  2. WARFARIN [Concomitant]

REACTIONS (1)
  - DEATH [None]
